FAERS Safety Report 17608223 (Version 1)
Quarter: 2020Q2

REPORT INFORMATION
  Report Type: Spontaneous
  Country: SE (occurrence: SE)
  Receive Date: 20200401
  Receipt Date: 20200401
  Transmission Date: 20200713
  Serious: Yes (Hospitalization)
  Sender: FDA-Public Use
  Company Number: SE-TEVA-2020-SE-1214196

PATIENT
  Age: 51 Year
  Sex: Male

DRUGS (13)
  1. AMLODIPINE [Concomitant]
     Active Substance: AMLODIPINE BESYLATE
  2. KALCIPOS-D FORTE [Concomitant]
     Active Substance: CALCIUM CARBONATE\CHOLECALCIFEROL
  3. OLANZAPINE. [Suspect]
     Active Substance: OLANZAPINE
     Dates: end: 20200227
  4. LANTUS [Concomitant]
     Active Substance: INSULIN GLARGINE
  5. NATRIUMBIKARBONAT [Concomitant]
     Active Substance: SODIUM BICARBONATE
  6. BEVIPLEX COMP [Concomitant]
  7. RESONIUM [Concomitant]
     Active Substance: SODIUM POLYSTYRENE SULFONATE
  8. LEVAXIN [Concomitant]
     Active Substance: LEVOTHYROXINE SODIUM
  9. CISORDINOL [Suspect]
     Active Substance: ZUCLOPENTHIXOL
     Dates: end: 202002
  10. HALDOL [Suspect]
     Active Substance: HALOPERIDOL
     Dates: end: 202002
  11. EPORATIO [Concomitant]
     Active Substance: ERYTHROPOIETIN
  12. PALIPERIDONE. [Suspect]
     Active Substance: PALIPERIDONE
     Dates: end: 202002
  13. ARTELAC [Concomitant]

REACTIONS (1)
  - Hypothermia [Unknown]

NARRATIVE: CASE EVENT DATE: 202002
